FAERS Safety Report 11316200 (Version 1)
Quarter: 2015Q3

REPORT INFORMATION
  Report Type: Spontaneous
  Country: PL (occurrence: PL)
  Receive Date: 20150728
  Receipt Date: 20150728
  Transmission Date: 20151125
  Serious: Yes (Hospitalization)
  Sender: FDA-Public Use
  Company Number: PL-AUROBINDO-AUR-APL-2015-06292

PATIENT
  Age: 4 Year
  Sex: Male

DRUGS (4)
  1. LAMOTRIGINE. [Suspect]
     Active Substance: LAMOTRIGINE
     Route: 065
  2. TOPIRAMATE. [Concomitant]
     Active Substance: TOPIRAMATE
     Indication: EPILEPSY
     Route: 065
  3. LEVETIRACETAM. [Concomitant]
     Active Substance: LEVETIRACETAM
     Indication: EPILEPSY
     Route: 065
  4. VALPROIC ACID. [Concomitant]
     Active Substance: VALPROIC ACID
     Indication: EPILEPSY
     Route: 065

REACTIONS (22)
  - Stomatitis [Unknown]
  - Swelling [Unknown]
  - Erythema [Recovered/Resolved]
  - Toxic epidermal necrolysis [Unknown]
  - Pyrexia [Unknown]
  - Seizure [Unknown]
  - Neutropenia [Unknown]
  - Skin lesion [Recovered/Resolved]
  - Blister [Recovered/Resolved]
  - Fluid overload [Unknown]
  - Renal failure [Unknown]
  - C-reactive protein increased [Unknown]
  - Vomiting [Unknown]
  - Rash [Recovered/Resolved]
  - Hyporeflexia [Unknown]
  - Epstein-Barr virus infection [Unknown]
  - Thrombocytopenia [Unknown]
  - Hepatomegaly [Unknown]
  - Hypoalbuminaemia [Unknown]
  - Oliguria [Unknown]
  - Condition aggravated [Unknown]
  - Lymphopenia [Unknown]
